FAERS Safety Report 4703188-8 (Version None)
Quarter: 2005Q2

REPORT INFORMATION
  Report Type: 
  Country: None (occurrence: None)
  Receive Date: 20050629
  Receipt Date: 20050602
  Transmission Date: 20051028
  Serious: Yes (Hospitalization)
  Sender: FDA-Public Use
  Company Number: 2005AP03202

PATIENT
  Age: 25682 Day
  Sex: Male
  Weight: 60 kg

DRUGS (16)
  1. DIPRIVAN [Suspect]
     Indication: SEDATION
     Dosage: MEAN RATE OF INFUSION-15 ML/HOUR, MAXIMUM RATE OF 16 ML/HOUR
     Route: 041
     Dates: start: 20050518, end: 20050601
  2. DORMICUM [Concomitant]
     Indication: SEDATION
     Route: 041
     Dates: start: 20050519, end: 20050601
  3. CEFAMEZIN [Concomitant]
     Indication: SEPSIS
     Route: 042
     Dates: start: 20050518, end: 20050522
  4. XYLOCAINE [Concomitant]
     Indication: VENTRICULAR TACHYCARDIA
     Route: 041
     Dates: start: 20050518, end: 20050527
  5. DOBUTREX [Concomitant]
     Indication: SHOCK
     Route: 041
     Dates: start: 20050518, end: 20050530
  6. HEPARIN [Concomitant]
     Indication: ACUTE MYOCARDIAL INFARCTION
     Route: 041
     Dates: start: 20050518, end: 20050530
  7. SIGMART [Concomitant]
     Indication: ACUTE MYOCARDIAL INFARCTION
     Route: 041
     Dates: start: 20050518, end: 20050531
  8. INOVAN [Concomitant]
     Indication: SHOCK
     Route: 041
     Dates: start: 20050518, end: 20050606
  9. GASTER [Concomitant]
     Indication: GASTRIC ULCER
     Route: 042
     Dates: start: 20050518
  10. ARTIST [Concomitant]
     Indication: CARDIAC FAILURE
     Route: 048
     Dates: start: 20050519
  11. ASPIRIN [Concomitant]
     Indication: ACUTE MYOCARDIAL INFARCTION
     Route: 048
     Dates: start: 20050519
  12. BLOPRESS [Concomitant]
     Indication: CARDIAC FAILURE
     Route: 048
     Dates: start: 20050519
  13. PANALDINE [Concomitant]
     Indication: ACUTE MYOCARDIAL INFARCTION
     Route: 048
     Dates: start: 20050519
  14. NITRODERM [Concomitant]
     Indication: ACUTE MYOCARDIAL INFARCTION
     Dates: start: 20050519
  15. ROCEPHIN [Concomitant]
     Indication: SEPSIS
     Route: 042
     Dates: start: 20050523, end: 20050524
  16. PRIMAXIN [Concomitant]
     Indication: SEPSIS
     Route: 042
     Dates: start: 20050525

REACTIONS (4)
  - ASPARTATE AMINOTRANSFERASE INCREASED [None]
  - BLOOD AMYLASE INCREASED [None]
  - PANCREATITIS ACUTE [None]
  - RHABDOMYOLYSIS [None]
